FAERS Safety Report 19974345 (Version 1)
Quarter: 2021Q4

REPORT INFORMATION
  Report Type: Spontaneous
  Country: US (occurrence: US)
  Receive Date: 20211020
  Receipt Date: 20211020
  Transmission Date: 20220304
  Serious: Yes (Other)
  Sender: FDA-Public Use
  Company Number: US-FRESENIUS KABI-FK202111320

PATIENT
  Age: 61 Year
  Sex: Male

DRUGS (4)
  1. DOXORUBICIN [Suspect]
     Active Substance: DOXORUBICIN
     Indication: Malignant peritoneal neoplasm
     Dosage: 15 MG/M2 IN (1.5 PERCENT) GLUCOSE, HIPEC
     Route: 065
  2. FLUOROURACIL [Suspect]
     Active Substance: FLUOROURACIL
     Indication: Malignant peritoneal neoplasm
     Dosage: (5-FLUOROURACIL)?600 MG/M2, EPIC
     Route: 065
  3. MITOMYCIN [Suspect]
     Active Substance: MITOMYCIN
     Indication: Malignant peritoneal neoplasm
     Dosage: 15 MG/M2, HIPEC
     Route: 065
  4. DEXTROSE [Concomitant]
     Active Substance: DEXTROSE
     Indication: Product used for unknown indication
     Dosage: 1.5 L/M2 PERITONEAL DIALYSIS SOLUTION
     Route: 065

REACTIONS (1)
  - Pancreatitis [Unknown]
